FAERS Safety Report 5152512-3 (Version None)
Quarter: 2006Q4

REPORT INFORMATION
  Report Type: 
  Country: None (occurrence: None)
  Receive Date: 20061116
  Receipt Date: 20061107
  Transmission Date: 20070319
  Serious: Yes (Death, Hospitalization)
  Sender: FDA-Public Use
  Company Number: FR-ELI_LILLY_AND_COMPANY-FR200611001504

PATIENT
  Age: 52 Year
  Sex: Female

DRUGS (1)
  1. GEMZAR [Suspect]
     Indication: NON-SMALL CELL LUNG CANCER
     Route: 042
     Dates: start: 20061026

REACTIONS (3)
  - DEATH [None]
  - INTERSTITIAL LUNG DISEASE [None]
  - URTICARIA [None]
